FAERS Safety Report 6944708-2 (Version None)
Quarter: 2010Q3

REPORT INFORMATION
  Report Type: 
  Country: None (occurrence: None)
  Receive Date: 20100827
  Receipt Date: 20100818
  Transmission Date: 20110219
  Serious: Yes (Life-Threatening)
  Sender: FDA-Public Use
  Company Number: DE-JNJFOC-20100806773

PATIENT
  Sex: Male

DRUGS (2)
  1. ABCIXIMAB [Suspect]
     Indication: ACUTE MYOCARDIAL INFARCTION
     Route: 022
  2. ABCIXIMAB [Suspect]
     Route: 042

REACTIONS (5)
  - CEREBROVASCULAR ACCIDENT [None]
  - INCORRECT ROUTE OF DRUG ADMINISTRATION [None]
  - PERICARDIAL EFFUSION [None]
  - PLEURAL EFFUSION [None]
  - URINARY TRACT OBSTRUCTION [None]
